FAERS Safety Report 9788413 (Version 3)
Quarter: 2014Q1

REPORT INFORMATION
  Report Type: Spontaneous
  Country: US (occurrence: US)
  Receive Date: 20131230
  Receipt Date: 20140306
  Transmission Date: 20141002
  Serious: No
  Sender: FDA-Public Use
  Company Number: US-009507513-1312USA009632

PATIENT
  Age: 24 Year
  Sex: Female
  Weight: 121.9 kg

DRUGS (2)
  1. NEXPLANON [Suspect]
     Dosage: 1 ROD
     Route: 059
     Dates: start: 20131219, end: 20131219
  2. NEXPLANON [Suspect]
     Dosage: UNK
     Route: 059
     Dates: start: 20140108

REACTIONS (3)
  - Device difficult to use [Recovered/Resolved]
  - Product quality control issue [Unknown]
  - No adverse event [Unknown]
